FAERS Safety Report 19441131 (Version 1)
Quarter: 2021Q2

REPORT INFORMATION
  Report Type: Spontaneous
  Country: IS (occurrence: IS)
  Receive Date: 20210621
  Receipt Date: 20210621
  Transmission Date: 20210717
  Serious: Yes (Other)
  Sender: FDA-Public Use
  Company Number: IS-TEVA-2021-IS-1923357

PATIENT
  Age: 45 Year
  Sex: Female
  Weight: 72 kg

DRUGS (4)
  1. FOLIC ACID. [Concomitant]
     Active Substance: FOLIC ACID
  2. SERETIDE DISKUS 50 MIKROGRAMOV/500 MIKROGRAMOV/ODMEREK [Concomitant]
     Dosage: 1X1
     Dates: start: 20210428
  3. MAGNESIA MEDIC [Concomitant]
  4. LORITIN 10 MG [Suspect]
     Active Substance: LORATADINE
     Dates: start: 20210428

REACTIONS (2)
  - Epilepsy [Unknown]
  - Muscle spasms [Unknown]

NARRATIVE: CASE EVENT DATE: 20210428
